FAERS Safety Report 4416848-3 (Version None)
Quarter: 2004Q3

REPORT INFORMATION
  Report Type: 
  Country: None (occurrence: None)
  Receive Date: 20040802
  Receipt Date: 20040719
  Transmission Date: 20050211
  Serious: Yes (Hospitalization, Other)
  Sender: FDA-Public Use
  Company Number: 04-00373

PATIENT
  Sex: Female

DRUGS (3)
  1. ACETAMINOPHEN [Suspect]
  2. ACETAMINOPHEN CHILDREN'S ELIXIR (ALPHARMA) [Suspect]
  3. ACETAMINOPHEN INFANT DROPS (ALPHARMA) [Suspect]

REACTIONS (7)
  - ASPERGILLOSIS [None]
  - COMA HEPATIC [None]
  - ESCHERICHIA SEPSIS [None]
  - FUNGAEMIA [None]
  - HAEMOPHILUS SEPSIS [None]
  - HEPATIC FAILURE [None]
  - THROMBOCYTOPENIA [None]
